FAERS Safety Report 4996456-6 (Version None)
Quarter: 2006Q2

REPORT INFORMATION
  Report Type: 
  Country: None (occurrence: None)
  Receive Date: 20060509
  Receipt Date: 20060427
  Transmission Date: 20061013
  Serious: Yes (Death)
  Sender: FDA-Public Use
  Company Number: PHBS2006TR06334

PATIENT
  Age: 38 Year
  Sex: Female

DRUGS (4)
  1. CYCLOSPORINE [Suspect]
     Indication: ALLOGENIC BONE MARROW TRANSPLANTATION THERAPY
     Route: 065
  2. METHOTREXATE [Concomitant]
     Indication: ALLOGENIC BONE MARROW TRANSPLANTATION THERAPY
     Route: 065
  3. CYCLOPHOSPHAMIDE [Concomitant]
     Indication: ALLOGENIC BONE MARROW TRANSPLANTATION THERAPY
  4. IRRADIATION [Concomitant]
     Indication: ALLOGENIC BONE MARROW TRANSPLANTATION THERAPY

REACTIONS (10)
  - ACUTE MYELOID LEUKAEMIA [None]
  - ASTHENIA [None]
  - BIOPSY BONE MARROW ABNORMAL [None]
  - BLAST CELL COUNT INCREASED [None]
  - BONE PAIN [None]
  - FULL BLOOD COUNT ABNORMAL [None]
  - HAEMOGLOBIN DECREASED [None]
  - PLATELET COUNT DECREASED [None]
  - STEM CELL TRANSPLANT [None]
  - WHITE BLOOD CELL COUNT INCREASED [None]
